FAERS Safety Report 9140060 (Version 2)
Quarter: 2013Q1

REPORT INFORMATION
  Report Type: Spontaneous
  Country: GB (occurrence: GB)
  Receive Date: 20130305
  Receipt Date: 20130315
  Transmission Date: 20140127
  Serious: Yes (Other)
  Sender: FDA-Public Use
  Company Number: PHHY2013GB019928

PATIENT
  Age: 27 Year
  Sex: Female

DRUGS (2)
  1. SERTRALINE [Suspect]
     Indication: ANXIETY DISORDER
     Dosage: 50 MG, QD ((2 TABLETS IN TOTAL)
     Route: 048
     Dates: start: 20130212, end: 20130215
  2. SERTRALINE [Suspect]
     Indication: DEPRESSION

REACTIONS (3)
  - Fall [Recovered/Resolved]
  - Crying [Unknown]
  - Loss of consciousness [Recovered/Resolved]
